FAERS Safety Report 18114807 (Version 4)
Quarter: 2025Q2

REPORT INFORMATION
  Report Type: Spontaneous
  Country: US (occurrence: US)
  Receive Date: 20200805
  Receipt Date: 20250620
  Transmission Date: 20250716
  Serious: Yes (Hospitalization, Other)
  Sender: SANOFI AVENTIS
  Company Number: US-SA-2020SA200481

PATIENT
  Age: 69 Year
  Sex: Male
  Weight: 82.73 kg

DRUGS (16)
  1. DUPIXENT [Suspect]
     Active Substance: DUPILUMAB
     Indication: Dermatitis atopic
     Dosage: 300 MG, QOW
     Route: 058
     Dates: start: 20200722
  2. COMBIVENT RESPIMAT [Concomitant]
     Active Substance: ALBUTEROL SULFATE\IPRATROPIUM BROMIDE
  3. VITAMIN D3 [Concomitant]
     Active Substance: CHOLECALCIFEROL
  4. ELIQUIS [Concomitant]
     Active Substance: APIXABAN
  5. CILOSTAZOL [Concomitant]
     Active Substance: CILOSTAZOL
  6. DOXEPIN HYDROCHLORIDE [Concomitant]
     Active Substance: DOXEPIN HYDROCHLORIDE
     Indication: Dermatitis atopic
  7. FORTAMET ER [Concomitant]
  8. LOSARTAN POTASSIUM [Concomitant]
     Active Substance: LOSARTAN POTASSIUM
  9. ERGOCALCIFEROL [Concomitant]
     Active Substance: ERGOCALCIFEROL
  10. ATORVASTATIN CALCIUM [Concomitant]
     Active Substance: ATORVASTATIN CALCIUM
  11. VALIUM [Concomitant]
     Active Substance: DIAZEPAM
  12. CILOSTAZOL [Concomitant]
     Active Substance: CILOSTAZOL
  13. TRIAMCINOLONE ACETONIDE [Concomitant]
     Active Substance: TRIAMCINOLONE ACETONIDE
  14. TAMSULOSIN HYDROCHLORIDE [Concomitant]
     Active Substance: TAMSULOSIN HYDROCHLORIDE
  15. VITAMIN D3 [Concomitant]
     Active Substance: CHOLECALCIFEROL
  16. AMBIEN [Concomitant]
     Active Substance: ZOLPIDEM TARTRATE

REACTIONS (7)
  - Retinal detachment [Unknown]
  - Hospitalisation [Unknown]
  - Lens disorder [Unknown]
  - Eczema [Unknown]
  - Pruritus [Unknown]
  - Skin burning sensation [Unknown]
  - Sensitive skin [Unknown]

NARRATIVE: CASE EVENT DATE: 20200101
